FAERS Safety Report 7021247-4 (Version None)
Quarter: 2010Q3

REPORT INFORMATION
  Report Type: 
  Country: None (occurrence: None)
  Receive Date: 20100929
  Receipt Date: 20100922
  Transmission Date: 20110219
  Serious: Yes (Other)
  Sender: FDA-Public Use
  Company Number: JP-PFIZER INC-2010120071

PATIENT
  Age: 55 Year
  Sex: Male

DRUGS (1)
  1. METHYLPREDNISOLONE SODIUM SUCCINATE [Suspect]
     Indication: POEMS SYNDROME
     Dosage: UNK
     Dates: start: 20010201

REACTIONS (2)
  - OESOPHAGEAL ULCER HAEMORRHAGE [None]
  - RENAL IMPAIRMENT [None]
